FAERS Safety Report 8210700-3 (Version None)
Quarter: 2012Q1

REPORT INFORMATION
  Report Type: 
  Country: None (occurrence: None)
  Receive Date: 20120314
  Receipt Date: 20120302
  Transmission Date: 20120608
  Serious: Yes (Hospitalization, Disabling, Other)
  Sender: FDA-Public Use
  Company Number: US-MYLANLABS-2012S1005536

PATIENT
  Sex: Female
  Weight: 85.73 kg

DRUGS (22)
  1. DIGOXIN [Suspect]
     Dates: start: 20060123, end: 20090515
  2. ALAVERT [Concomitant]
  3. NUBAIN [Concomitant]
  4. COUMADIN [Concomitant]
  5. PREVACID [Concomitant]
  6. NASALCROM [Concomitant]
  7. PERCOCET [Concomitant]
  8. ASPIRIN [Concomitant]
  9. LOPRESSOR [Concomitant]
  10. CALCIUM CARBONATE [Concomitant]
  11. CALCIUM WITH VITAMIN D [Concomitant]
  12. CROMOLYN SODIUM [Concomitant]
  13. ACETAMINOPHEN [Concomitant]
  14. NIACIN [Concomitant]
  15. ADENOSINE [Concomitant]
  16. DILTIAZEM HCL [Concomitant]
  17. NORFLEX [Concomitant]
  18. ANTIFUNGALS FOR SYSTEMIC USE [Concomitant]
     Dosage: OTC FOR ORAL YEAST INFECTION
  19. FOSAMAX [Concomitant]
  20. OXYCODONE HCL [Concomitant]
  21. ACTONEL [Concomitant]
  22. ORPHENADRINE CITRATE [Concomitant]

REACTIONS (81)
  - CARDIOMEGALY [None]
  - DECREASED APPETITE [None]
  - ECCHYMOSIS [None]
  - ELECTROCARDIOGRAM ST-T SEGMENT ABNORMAL [None]
  - LEFT VENTRICULAR HYPERTROPHY [None]
  - LIMB DISCOMFORT [None]
  - ORAL FUNGAL INFECTION [None]
  - PALPITATIONS [None]
  - VENTRICULAR EXTRASYSTOLES [None]
  - ATRIOVENTRICULAR BLOCK [None]
  - DYSPNOEA [None]
  - ECHOCARDIOGRAM ABNORMAL [None]
  - HAEMORRHAGE [None]
  - NOCTURIA [None]
  - PALLOR [None]
  - PETECHIAE [None]
  - PULMONARY HYPERTENSION [None]
  - AORTIC VALVE STENOSIS [None]
  - CONSTIPATION [None]
  - EJECTION FRACTION DECREASED [None]
  - ELECTROCARDIOGRAM ABNORMAL [None]
  - EXCORIATION [None]
  - FALL [None]
  - HEART SOUNDS ABNORMAL [None]
  - INTENSIVE CARE [None]
  - LIGAMENT SPRAIN [None]
  - TENDERNESS [None]
  - SUPRAVENTRICULAR TACHYCARDIA [None]
  - ADVERSE DRUG REACTION [None]
  - BLOOD CREATININE INCREASED [None]
  - CARDIAC TELEMETRY [None]
  - DILATATION VENTRICULAR [None]
  - EMOTIONAL DISTRESS [None]
  - LEFT ATRIAL DILATATION [None]
  - TACHYCARDIA [None]
  - BACK INJURY [None]
  - BACK PAIN [None]
  - CHOLELITHIASIS [None]
  - CONTUSION [None]
  - DRUG INEFFECTIVE [None]
  - GASTROOESOPHAGEAL REFLUX DISEASE [None]
  - HAEMATOMA [None]
  - NAUSEA [None]
  - OSTEOPOROSIS [None]
  - DISEASE RECURRENCE [None]
  - BLOOD PRESSURE DECREASED [None]
  - ASTHENIA [None]
  - COLD SWEAT [None]
  - ESSENTIAL HYPERTENSION [None]
  - GLOMERULAR FILTRATION RATE DECREASED [None]
  - HEART VALVE REPLACEMENT [None]
  - HYPERLIPIDAEMIA [None]
  - MEDICAL DIET [None]
  - MYALGIA [None]
  - ATRIAL FIBRILLATION [None]
  - ACTIVITIES OF DAILY LIVING IMPAIRED [None]
  - GAIT DISTURBANCE [None]
  - GROIN PAIN [None]
  - JOINT INJURY [None]
  - LIGAMENT INJURY [None]
  - PAIN [None]
  - PULMONARY ARTERIAL PRESSURE ABNORMAL [None]
  - TRICUSPID VALVE INCOMPETENCE [None]
  - WALKING AID USER [None]
  - ARRHYTHMIA [None]
  - ALANINE AMINOTRANSFERASE INCREASED [None]
  - AORTIC VALVE INCOMPETENCE [None]
  - AORTIC VALVE SCLEROSIS [None]
  - ARTHRALGIA [None]
  - ATRIAL FLUTTER [None]
  - CARDIAC PACEMAKER INSERTION [None]
  - DISCOMFORT [None]
  - DYSPEPSIA [None]
  - HYPERTENSION [None]
  - LEFT VENTRICULAR DYSFUNCTION [None]
  - MUSCULOSKELETAL CHEST PAIN [None]
  - OBESITY [None]
  - OEDEMA PERIPHERAL [None]
  - OSTEOPENIA [None]
  - PLANTAR FASCIITIS [None]
  - SPINAL OSTEOARTHRITIS [None]
